FAERS Safety Report 9203843 (Version 1)
Quarter: 2013Q2

REPORT INFORMATION
  Report Type: Spontaneous
  Country: US (occurrence: US)
  Receive Date: 20130402
  Receipt Date: 20130402
  Transmission Date: 20140414
  Serious: Yes (Other)
  Sender: FDA-Public Use
  Company Number: US-PFIZER INC-2013102209

PATIENT
  Age: 22 Year
  Sex: Female
  Weight: 72.56 kg

DRUGS (3)
  1. LYRICA [Suspect]
     Indication: NEURALGIA
     Dosage: 50 MG, 3X/DAY
     Route: 048
     Dates: start: 201302, end: 201303
  2. FLEXERIL [Concomitant]
     Indication: MUSCLE SPASMS
     Dosage: 10 MG, 3X/DAY
  3. ZOLOFT [Concomitant]
     Indication: DEPRESSION
     Dosage: 100 MG, 1X/DAY

REACTIONS (2)
  - Activities of daily living impaired [Not Recovered/Not Resolved]
  - Pain [Not Recovered/Not Resolved]
